FAERS Safety Report 8986442 (Version 1)
Quarter: 2012Q4

REPORT INFORMATION
  Report Type: 
  Country: US (occurrence: US)
  Receive Date: 20121226
  Receipt Date: 20121226
  Transmission Date: 20130627
  Serious: Yes (Other)
  Sender: FDA-Public Use
  Company Number: PHEH2012US019327

PATIENT
  Age: 41 Year
  Sex: Female
  Weight: 49.89 kg

DRUGS (9)
  1. GILENYA [Suspect]
     Indication: MULTIPLE SCLEROSIS
     Dosage: 0.5 mg, QD
     Route: 048
     Dates: start: 20110401, end: 20121203
  2. MELATONIN [Concomitant]
     Dosage: 4 tabs, QD
  3. HYDROXYCHLOROQUINE [Concomitant]
     Dosage: 200 mg, QD
  4. THERA CAL [Concomitant]
     Dosage: 2000 mg, BID
  5. VESICARE [Concomitant]
     Dosage: 5 mg, QD
  6. TRIFLEX [Concomitant]
     Dosage: UNK UKN, QD
  7. ZINC [Concomitant]
     Dosage: 50 mg, QD
  8. HYDROCODONE BIT. AND HOMATROPINE METH. [Concomitant]
     Dosage: 5 ml, Q4H
  9. FISH OIL [Concomitant]
     Dosage: 2 caps, QD

REACTIONS (19)
  - Tuberculosis [Not Recovered/Not Resolved]
  - Asthma [Not Recovered/Not Resolved]
  - Pulmonary congestion [Not Recovered/Not Resolved]
  - Wheezing [Not Recovered/Not Resolved]
  - Lung disorder [Not Recovered/Not Resolved]
  - Pleural disorder [Not Recovered/Not Resolved]
  - Nephrolithiasis [Unknown]
  - Lung infection [Not Recovered/Not Resolved]
  - Increased upper airway secretion [Not Recovered/Not Resolved]
  - Fatigue [Not Recovered/Not Resolved]
  - Hypersensitivity [Not Recovered/Not Resolved]
  - Rhinorrhoea [Unknown]
  - Arthralgia [Unknown]
  - Anxiety [Unknown]
  - Cough [Recovering/Resolving]
  - Dizziness [Recovering/Resolving]
  - Asthenia [Recovering/Resolving]
  - Headache [Unknown]
  - Dyspnoea [Not Recovered/Not Resolved]
